FAERS Safety Report 8799570 (Version 1)
Quarter: 2012Q4

REPORT INFORMATION
  Report Type: Spontaneous
  Country: GB (occurrence: None)
  Receive Date: 20120914
  Receipt Date: 20120914
  Transmission Date: 20130627
  Serious: Yes (Other)
  Sender: FDA-Public Use
  Company Number: GER/UKI/12/0025796

PATIENT
  Age: 59 Year
  Sex: Female

DRUGS (4)
  1. RISPERIDONE [Suspect]
     Route: 048
     Dates: start: 2012
  2. RISPERIDONE [Suspect]
     Route: 048
  3. RISPERIDONE [Suspect]
     Route: 048
  4. XEPLION [Suspect]
     Route: 030
     Dates: start: 201206

REACTIONS (1)
  - Hallucination, auditory [None]
